FAERS Safety Report 12165340 (Version 2)
Quarter: 2016Q1

REPORT INFORMATION
  Report Type: Report from Study
  Country: KR (occurrence: KR)
  Receive Date: 20160309
  Receipt Date: 20160323
  Transmission Date: 20160526
  Serious: Yes (Hospitalization)
  Sender: FDA-Public Use
  Company Number: KR-CONCORDIA LABORATORIES INC.-PIN-2015-00016

PATIENT
  Age: 67 Year
  Sex: Male

DRUGS (55)
  1. ERTAPENEM [Concomitant]
     Active Substance: ERTAPENEM
     Indication: KLEBSIELLA INFECTION
     Dates: start: 20150225, end: 20150226
  2. MEGESTROL ACETATE. [Concomitant]
     Active Substance: MEGESTROL ACETATE
     Route: 065
     Dates: start: 20150310, end: 20150331
  3. EBASTINE [Concomitant]
     Active Substance: EBASTINE
     Indication: PROPHYLAXIS
     Route: 048
     Dates: start: 20150225, end: 20150225
  4. NORMAL SALINE [Concomitant]
     Active Substance: SODIUM CHLORIDE
     Indication: PROPHYLAXIS
     Dates: start: 20150223, end: 20150225
  5. NORMAL SALINE [Concomitant]
     Active Substance: SODIUM CHLORIDE
     Indication: PRODUCT USED FOR UNKNOWN INDICATION
     Route: 065
     Dates: start: 20150225, end: 20150225
  6. NORMAL SALINE [Concomitant]
     Active Substance: SODIUM CHLORIDE
     Indication: PRODUCT USED FOR UNKNOWN INDICATION
     Route: 065
     Dates: start: 20150303, end: 20150303
  7. DEXTROSE. [Concomitant]
     Active Substance: DEXTROSE
     Indication: PRODUCT USED FOR UNKNOWN INDICATION
     Dates: start: 20150225, end: 20150227
  8. FENTANYL CITRATE. [Concomitant]
     Active Substance: FENTANYL CITRATE
     Indication: PROPHYLAXIS
     Route: 048
     Dates: start: 20150223, end: 20150224
  9. METOCLOPRAMIDE. [Concomitant]
     Active Substance: METOCLOPRAMIDE
     Indication: PROPHYLAXIS
     Route: 042
     Dates: start: 20150310, end: 20150310
  10. NORZYME [Concomitant]
     Indication: PROPHYLAXIS
     Route: 048
     Dates: start: 20150228, end: 20150228
  11. GEMCITABINE [Suspect]
     Active Substance: GEMCITABINE\GEMCITABINE HYDROCHLORIDE
     Dates: start: 20150310
  12. ACETAMINOPHEN. [Concomitant]
     Active Substance: ACETAMINOPHEN
     Route: 048
     Dates: start: 20150224, end: 20150224
  13. NORMAL SALINE [Concomitant]
     Active Substance: SODIUM CHLORIDE
     Indication: PRODUCT USED FOR UNKNOWN INDICATION
     Route: 065
     Dates: start: 20150302, end: 20150304
  14. NORMAL SALINE [Concomitant]
     Active Substance: SODIUM CHLORIDE
     Indication: PRODUCT USED FOR UNKNOWN INDICATION
  15. TAMSULOSIN HCL [Concomitant]
     Active Substance: TAMSULOSIN
     Indication: BENIGN PROSTATIC HYPERPLASIA
     Route: 048
     Dates: start: 20150226, end: 20150321
  16. BROMHEXINE [Concomitant]
     Active Substance: BROMHEXINE
     Indication: PROPHYLAXIS
     Route: 048
     Dates: start: 20150227, end: 20150227
  17. BENZYDAMINE HCL [Concomitant]
     Indication: PROPHYLAXIS
     Route: 048
     Dates: start: 20150227, end: 20150227
  18. METOCLOPRAMIDE. [Concomitant]
     Active Substance: METOCLOPRAMIDE
     Route: 042
     Dates: start: 20150303, end: 20150303
  19. METRONIDAZOLE. [Concomitant]
     Active Substance: METRONIDAZOLE
     Indication: KLEBSIELLA INFECTION
     Dates: start: 20150223, end: 20150223
  20. NORMAL SALINE [Concomitant]
     Active Substance: SODIUM CHLORIDE
     Indication: PROPHYLAXIS
     Dates: start: 20150226, end: 20150226
  21. TAMSULOSIN HCL [Concomitant]
     Active Substance: TAMSULOSIN
     Route: 048
     Dates: start: 20150226, end: 20150321
  22. FINASTERIDE. [Concomitant]
     Active Substance: FINASTERIDE
     Indication: BENIGN PROSTATIC HYPERPLASIA
     Route: 048
     Dates: start: 201310, end: 20150321
  23. CISPLATIN. [Suspect]
     Active Substance: CISPLATIN
     Dates: start: 20150310, end: 20150310
  24. ACETAMINOPHEN. [Concomitant]
     Active Substance: ACETAMINOPHEN
     Indication: KLEBSIELLA INFECTION
     Route: 048
     Dates: start: 20150223, end: 20150223
  25. METRONIDAZOLE. [Concomitant]
     Active Substance: METRONIDAZOLE
     Dates: start: 20150224, end: 20150224
  26. NORMAL SALINE [Concomitant]
     Active Substance: SODIUM CHLORIDE
     Indication: PRODUCT USED FOR UNKNOWN INDICATION
     Dates: start: 20150225, end: 20150225
  27. NORMAL SALINE [Concomitant]
     Active Substance: SODIUM CHLORIDE
     Indication: PRODUCT USED FOR UNKNOWN INDICATION
     Route: 065
     Dates: start: 20150310, end: 20150310
  28. SODIUM BICARBONATE. [Concomitant]
     Active Substance: SODIUM BICARBONATE
     Indication: KLEBSIELLA INFECTION
     Dates: start: 20150225, end: 20150228
  29. GODEX [Concomitant]
     Indication: CHOLANGIOCARCINOMA
     Route: 048
     Dates: start: 20150203, end: 20150507
  30. URSODEOXYCHOLIC ACID [Concomitant]
     Active Substance: URSODIOL
     Indication: PRODUCT USED FOR UNKNOWN INDICATION
  31. FENTANYL CITRATE. [Concomitant]
     Active Substance: FENTANYL CITRATE
     Route: 062
     Dates: start: 20150223, end: 20150306
  32. RAMOSETRON [Concomitant]
     Active Substance: RAMOSETRON HYDROCHLORIDE
     Route: 042
     Dates: start: 20150310, end: 20150310
  33. GEMCITABINE [Suspect]
     Active Substance: GEMCITABINE\GEMCITABINE HYDROCHLORIDE
     Indication: BILE DUCT CANCER
     Dates: start: 20150303, end: 20150303
  34. METRONIDAZOLE. [Concomitant]
     Active Substance: METRONIDAZOLE
     Dates: start: 20150225, end: 20150225
  35. NORMAL SALINE [Concomitant]
     Active Substance: SODIUM CHLORIDE
     Indication: PRODUCT USED FOR UNKNOWN INDICATION
     Route: 065
     Dates: start: 20150225, end: 20150226
  36. CLINIMIX N9G15E [Concomitant]
     Indication: PROPHYLAXIS
     Dates: start: 20150223, end: 20150304
  37. KETOPROFEN. [Concomitant]
     Active Substance: KETOPROFEN
     Indication: PROPHYLAXIS
     Route: 065
     Dates: start: 20150224, end: 20150224
  38. SODIUM BICARBONATE. [Concomitant]
     Active Substance: SODIUM BICARBONATE
     Indication: PRODUCT USED FOR UNKNOWN INDICATION
     Route: 040
     Dates: start: 20150225, end: 20150225
  39. BISACODYL. [Concomitant]
     Active Substance: BISACODYL
     Indication: PROPHYLAXIS
     Dates: start: 20150226, end: 20150226
  40. LIVACT [Concomitant]
     Active Substance: AMINO ACIDS
     Indication: CHOLANGIOCARCINOMA
     Route: 048
     Dates: start: 20150131, end: 20150507
  41. MEGESTROL ACETATE. [Concomitant]
     Active Substance: MEGESTROL ACETATE
     Indication: PROPHYLAXIS
     Route: 048
     Dates: start: 20150223, end: 20150224
  42. NORMAL SALINE [Concomitant]
     Active Substance: SODIUM CHLORIDE
     Indication: PRODUCT USED FOR UNKNOWN INDICATION
     Route: 065
     Dates: start: 20150228, end: 20150302
  43. DEXTROSE. [Concomitant]
     Active Substance: DEXTROSE
     Indication: KLEBSIELLA INFECTION
     Dates: start: 20150225, end: 20150228
  44. VIREAD [Concomitant]
     Active Substance: TENOFOVIR DISOPROXIL FUMARATE
     Indication: HEPATITIS B
     Route: 048
     Dates: start: 201007, end: 20150907
  45. RAMOSETRON [Concomitant]
     Active Substance: RAMOSETRON HYDROCHLORIDE
     Indication: PROPHYLAXIS
     Route: 042
     Dates: start: 20150303, end: 20150303
  46. PHOTOFRIN [Suspect]
     Active Substance: PORFIMER SODIUM
     Indication: PRODUCT USED FOR UNKNOWN INDICATION
     Route: 065
  47. NOREPINEPHRINE [Concomitant]
     Active Substance: NOREPINEPHRINE\NOREPINEPHRINE BITARTRATE
     Indication: KLEBSIELLA INFECTION
     Dates: start: 20150225, end: 20150227
  48. LEVOFLOXACIN. [Concomitant]
     Active Substance: LEVOFLOXACIN
     Indication: KLEBSIELLA INFECTION
     Route: 042
     Dates: start: 20150227, end: 20150303
  49. HEPA-MERZ [Concomitant]
     Indication: PROPHYLAXIS
     Route: 042
     Dates: start: 20150302, end: 20150304
  50. CISPLATIN. [Suspect]
     Active Substance: CISPLATIN
     Indication: BILE DUCT CANCER
     Dates: start: 20150303, end: 20150303
  51. CEFTRIAXONE. [Concomitant]
     Active Substance: CEFTRIAXONE
     Indication: KLEBSIELLA INFECTION
     Dates: start: 20150223, end: 20150224
  52. BROMHEXINE [Concomitant]
     Active Substance: BROMHEXINE
     Route: 048
     Dates: start: 20150228, end: 20150327
  53. TAMIPOOL [Concomitant]
     Active Substance: VITAMINS
     Indication: PROPHYLAXIS
     Route: 042
     Dates: start: 20150223, end: 20150304
  54. URSODEOXYCHOLIC ACID [Concomitant]
     Active Substance: URSODIOL
     Indication: CHOLANGIOCARCINOMA
     Route: 048
     Dates: start: 20150203, end: 20150506
  55. FURTMAN [Concomitant]
     Indication: PRODUCT USED FOR UNKNOWN INDICATION
     Route: 065
     Dates: start: 20150223, end: 20150304

REACTIONS (1)
  - Biliary sepsis [None]

NARRATIVE: CASE EVENT DATE: 20150316
